FAERS Safety Report 6388292-3 (Version None)
Quarter: 2009Q4

REPORT INFORMATION
  Report Type: 
  Country: None (occurrence: None)
  Receive Date: 20091001
  Receipt Date: 20091001
  Transmission Date: 20100525
  Serious: Yes (Hospitalization)
  Sender: FDA-Public Use
  Company Number: None

PATIENT
  Age: 81 Year
  Sex: Male
  Weight: 95.7 kg

DRUGS (1)
  1. LISINOPRIL [Suspect]
     Indication: HYPERTENSION
     Dosage: 40MG EVERY DAY PO
     Route: 048
     Dates: start: 20071220, end: 20090928

REACTIONS (3)
  - ANGIOEDEMA [None]
  - LIP SWELLING [None]
  - SWOLLEN TONGUE [None]
